FAERS Safety Report 13025376 (Version 2)
Quarter: 2017Q1

REPORT INFORMATION
  Report Type: Spontaneous
  Country: US (occurrence: US)
  Receive Date: 20161214
  Receipt Date: 20170120
  Transmission Date: 20170428
  Serious: No
  Sender: FDA-Public Use
  Company Number: US-ASTRAZENECA-2016SF28303

PATIENT
  Sex: Female

DRUGS (3)
  1. BUDESONIDE VIA NEBULIZER [Concomitant]
     Route: 055
  2. PERFORMIST VIA NEBULIZER [Concomitant]
     Route: 055
  3. PULMICORT FLEXHALER [Suspect]
     Active Substance: BUDESONIDE
     Indication: CHRONIC OBSTRUCTIVE PULMONARY DISEASE
     Dosage: 90 MCG 2 PUFFS TWICE A DAY
     Route: 055
     Dates: start: 2016

REACTIONS (5)
  - Product use issue [Unknown]
  - Drug dose omission [Unknown]
  - Dyspnoea [Unknown]
  - Off label use [Unknown]
  - Product quality issue [Unknown]
